FAERS Safety Report 5368611-7 (Version None)
Quarter: 2007Q2

REPORT INFORMATION
  Report Type: 
  Country: None (occurrence: None)
  Receive Date: 20070625
  Receipt Date: 20070614
  Transmission Date: 20071010
  Serious: Yes (Other)
  Sender: FDA-Public Use
  Company Number: FR-JNJFOC-20070302170

PATIENT
  Sex: Female
  Weight: 80 kg

DRUGS (1)
  1. RISPERDAL [Suspect]
     Indication: PSYCHOTIC DISORDER
     Route: 048

REACTIONS (3)
  - HEPATIC CIRRHOSIS [None]
  - HEPATIC STEATOSIS [None]
  - WEIGHT INCREASED [None]
